FAERS Safety Report 5949591-X (Version None)
Quarter: 2008Q4

REPORT INFORMATION
  Report Type: 
  Country: None (occurrence: None)
  Receive Date: 20081021
  Receipt Date: 20080228
  Transmission Date: 20090506
  Serious: Yes (Other)
  Sender: FDA-Public Use
  Company Number: HQWYE493206JUN03

PATIENT
  Age: 58 Year
  Sex: Female

DRUGS (2)
  1. PREMARIN [Suspect]
     Dosage: UNSPECIFIED, ORAL, EVERYDAY FOR A NUMBER
     Route: 048
  2. PROVERA [Suspect]

REACTIONS (2)
  - BREAST CANCER FEMALE [None]
  - BREAST NEOPLASM [None]
